FAERS Safety Report 8448473-1 (Version None)
Quarter: 2012Q2

REPORT INFORMATION
  Report Type: 
  Country: None (occurrence: None)
  Receive Date: 20120619
  Receipt Date: 20120606
  Transmission Date: 20120825
  Serious: Yes (Death, Hospitalization)
  Sender: FDA-Public Use
  Company Number: FR-CELGENEUS-056-21880-12060949

PATIENT
  Sex: Female
  Weight: 61 kg

DRUGS (9)
  1. REVLIMID [Suspect]
     Route: 048
     Dates: start: 20111103, end: 20120116
  2. VIDAZA [Suspect]
     Route: 058
     Dates: start: 20111003, end: 20111204
  3. HYDREA [Concomitant]
     Route: 065
  4. HYDREA [Concomitant]
     Route: 065
     Dates: start: 20120220
  5. HYDREA [Concomitant]
     Route: 065
     Dates: start: 20120222
  6. INSULIN [Concomitant]
     Route: 065
  7. VALACYCLOVIR HYDROCHLORIDE [Concomitant]
     Dosage: 1000 MILLIGRAM
     Route: 065
  8. ZOLPIDEM TARTRATE [Concomitant]
     Dosage: 10 MILLIGRAM
     Route: 065
  9. ALLOPURINOL [Concomitant]
     Dosage: 300 MILLIGRAM
     Route: 065

REACTIONS (3)
  - PYREXIA [None]
  - GENERAL PHYSICAL HEALTH DETERIORATION [None]
  - ACUTE MYELOID LEUKAEMIA RECURRENT [None]
